FAERS Safety Report 17101886 (Version 2)
Quarter: 2020Q1

REPORT INFORMATION
  Report Type: Report from Study
  Country: JP (occurrence: JP)
  Receive Date: 20191202
  Receipt Date: 20200325
  Transmission Date: 20200409
  Serious: Yes (Other)
  Sender: FDA-Public Use
  Company Number: NVSJ2019JP002761

PATIENT
  Age: 72 Year
  Sex: Female
  Weight: 48 kg

DRUGS (38)
  1. FILGRASTIM BS INJ. SYRINGE [Suspect]
     Active Substance: FILGRASTIM
     Dosage: 75 ?G/M2, QD
     Route: 062
     Dates: start: 20171214, end: 20171216
  2. ATORVASTATIN [Concomitant]
     Active Substance: ATORVASTATIN
     Indication: DYSLIPIDAEMIA
     Dosage: 5 MG,UNK
     Route: 048
  3. AMLODIPINE [Concomitant]
     Active Substance: AMLODIPINE BESYLATE
     Indication: HYPERTENSION
     Dosage: 5MG, UNK
     Route: 048
     Dates: end: 20171116
  4. NIFEDIPINE. [Concomitant]
     Active Substance: NIFEDIPINE
     Indication: HYPERTENSION
     Dosage: 10 MG, UNK
     Route: 048
     Dates: start: 20180107
  5. REVLIMID [Concomitant]
     Active Substance: LENALIDOMIDE
     Dosage: 20 MG, UNK
     Route: 048
     Dates: start: 20171204, end: 20171224
  6. ADRIACIN [Concomitant]
     Active Substance: DOXORUBICIN HYDROCHLORIDE
     Dosage: 12 MG,UNK
     Route: 041
     Dates: start: 20180105, end: 20180108
  7. ZOLEDRON [Concomitant]
     Active Substance: ZOLEDRONIC ACID
     Indication: PLASMA CELL MYELOMA
     Dosage: 4 MG,UNK
     Route: 041
     Dates: start: 20171208, end: 20171208
  8. FILGRASTIM BS INJ. SYRINGE [Suspect]
     Active Substance: FILGRASTIM
     Dosage: 75 ?G/M2, QD
     Route: 058
     Dates: start: 20171212, end: 20171212
  9. REVLIMID [Concomitant]
     Active Substance: LENALIDOMIDE
     Dosage: 20 MG, UNK
     Route: 048
     Dates: start: 20180105, end: 20180125
  10. LENADEX [Concomitant]
     Active Substance: DEXAMETHASONE ACETATE
     Dosage: 20 MG
     Route: 048
     Dates: start: 20171116, end: 20171116
  11. ADRIACIN [Concomitant]
     Active Substance: DOXORUBICIN HYDROCHLORIDE
     Dosage: 12 MG,UNK
     Route: 048
     Dates: start: 20180213, end: 20180216
  12. ZOLEDRON [Concomitant]
     Active Substance: ZOLEDRONIC ACID
     Dosage: 4 MG,UNK
     Route: 041
     Dates: start: 20180323, end: 20180323
  13. FILGRASTIM BS INJ. SYRINGE [Suspect]
     Active Substance: FILGRASTIM
     Dosage: 75 ?G/M2, QD
     Route: 062
     Dates: start: 20180220, end: 20180222
  14. FILGRASTIM BS INJ. SYRINGE [Suspect]
     Active Substance: FILGRASTIM
     Dosage: 75 ?G/M2, QD
     Route: 062
     Dates: start: 20180224, end: 20180225
  15. REVLIMID [Concomitant]
     Active Substance: LENALIDOMIDE
     Dosage: 20 MG, UNK
     Route: 048
     Dates: start: 20180213, end: 20180305
  16. LENADEX [Concomitant]
     Active Substance: DEXAMETHASONE ACETATE
     Dosage: 20 MG
     Route: 048
     Dates: start: 20180105, end: 20180108
  17. REVLIMID [Concomitant]
     Active Substance: LENALIDOMIDE
     Indication: PLASMA CELL MYELOMA
     Dosage: 20 MG, UNK
     Route: 048
     Dates: end: 20171122
  18. LENADEX [Concomitant]
     Active Substance: DEXAMETHASONE ACETATE
     Dosage: 20 MG
     Route: 048
     Dates: start: 20171220, end: 20171223
  19. FILGRASTIM BS INJ. SYRINGE [Suspect]
     Active Substance: FILGRASTIM
     Indication: NEUTROPENIA
     Dosage: 75 ?G/M2, QD
     Route: 058
     Dates: start: 20171209, end: 20171210
  20. FILGRASTIM BS INJ. SYRINGE [Suspect]
     Active Substance: FILGRASTIM
     Dosage: 75 ?G/M2, QD
     Route: 062
     Dates: start: 20180111, end: 20180111
  21. CANDESARTAN. [Concomitant]
     Active Substance: CANDESARTAN
     Indication: HYPERTENSION
     Dosage: 4 MG,UNK
     Route: 048
     Dates: start: 20171117, end: 20171214
  22. ADRIACIN [Concomitant]
     Active Substance: DOXORUBICIN HYDROCHLORIDE
     Indication: PLASMA CELL MYELOMA
     Dosage: 12 MG,UNK
     Route: 041
     Dates: start: 20171204, end: 20171207
  23. ZOLEDRON [Concomitant]
     Active Substance: ZOLEDRONIC ACID
     Dosage: 4 MG,UNK
     Route: 041
     Dates: start: 20180219, end: 20180219
  24. PLATELETS [Concomitant]
     Active Substance: HUMAN PLATELET, ALLOGENIC
     Indication: PROPHYLAXIS
     Dosage: 10U, UNK,
     Route: 041
     Dates: start: 20171109, end: 20171121
  25. LENADEX [Concomitant]
     Active Substance: DEXAMETHASONE ACETATE
     Dosage: 20 MG
     Route: 048
     Dates: start: 20180213, end: 20180216
  26. LENADEX [Concomitant]
     Active Substance: DEXAMETHASONE ACETATE
     Dosage: 20 MG, UNK
     Route: 048
     Dates: start: 20180227, end: 20180302
  27. ZOLEDRON [Concomitant]
     Active Substance: ZOLEDRONIC ACID
     Dosage: 4 MG,UNK
     Route: 041
     Dates: start: 20180116, end: 20180116
  28. FILGRASTIM BS INJ. SYRINGE [Suspect]
     Active Substance: FILGRASTIM
     Dosage: 75 ?G/M2, QD
     Route: 062
     Dates: start: 20171218, end: 20171218
  29. REVLIMID [Concomitant]
     Active Substance: LENALIDOMIDE
     Dosage: 20 MG, UNK
     Route: 048
     Dates: start: 20180314
  30. LENADEX [Concomitant]
     Active Substance: DEXAMETHASONE ACETATE
     Dosage: 20 MG
     Route: 048
     Dates: start: 20171123, end: 20171123
  31. LENADEX [Concomitant]
     Active Substance: DEXAMETHASONE ACETATE
     Dosage: 20 MG, UNK
     Route: 048
     Dates: start: 20180121, end: 20180124
  32. CARFILZOMIB [Concomitant]
     Active Substance: CARFILZOMIB
     Dosage: 36 MG,UNK
     Route: 041
     Dates: start: 20180322, end: 20180323
  33. FILGRASTIM BS INJ. SYRINGE [Suspect]
     Active Substance: FILGRASTIM
     Dosage: 75 ?G/M2, QD
     Route: 062
     Dates: start: 20180113, end: 20180117
  34. OLMESARTAN [Concomitant]
     Active Substance: OLMESARTAN
     Indication: HYPERTENSION
     Dosage: 20 MG,UNK
     Route: 048
     Dates: end: 20171123
  35. LENADEX [Concomitant]
     Active Substance: DEXAMETHASONE ACETATE
     Indication: PROPHYLAXIS
     Dosage: 20 MG, UNK
     Route: 048
     Dates: start: 20171109, end: 20171109
  36. LENADEX [Concomitant]
     Active Substance: DEXAMETHASONE ACETATE
     Dosage: 20 MG
     Route: 048
     Dates: start: 20171204, end: 20171207
  37. CARFILZOMIB [Concomitant]
     Active Substance: CARFILZOMIB
     Indication: PLASMA CELL MYELOMA
     Dosage: 26 MG,UNK
     Route: 041
     Dates: start: 20180314, end: 20180315
  38. RED BLOOD CELLS, CONCENTRATED [Concomitant]
     Active Substance: HUMAN RED BLOOD CELL
     Indication: PROPHYLAXIS
     Dosage: 2 U, UNK
     Route: 041
     Dates: start: 20171202, end: 20171202

REACTIONS (3)
  - Malignant neoplasm progression [Unknown]
  - Liver disorder [Recovered/Resolved]
  - Plasma cell myeloma [Unknown]

NARRATIVE: CASE EVENT DATE: 20171225
